FAERS Safety Report 16248200 (Version 1)
Quarter: 2019Q2

REPORT INFORMATION
  Report Type: Other
  Country: NO (occurrence: NO)
  Receive Date: 20190428
  Receipt Date: 20190428
  Transmission Date: 20190711
  Serious: Yes (Hospitalization)
  Sender: FDA-Public Use
  Company Number: NO-CELLTRION INC.-2018NO024608

PATIENT

DRUGS (2)
  1. REMSIMA [Suspect]
     Active Substance: INFLIXIMAB
     Indication: ANKYLOSING SPONDYLITIS
     Dosage: 500 MG, 1 MONTH
     Route: 042
     Dates: start: 20171117, end: 20171117
  2. REMSIMA [Suspect]
     Active Substance: INFLIXIMAB
     Dosage: 500 MG, 1 MONTH
     Route: 042
     Dates: start: 20171212, end: 20171212

REACTIONS (4)
  - Aspartate aminotransferase increased [Recovering/Resolving]
  - Autoimmune hepatitis [Recovering/Resolving]
  - Alanine aminotransferase increased [Recovering/Resolving]
  - Incorrect dose administered [Unknown]

NARRATIVE: CASE EVENT DATE: 20180110
